FAERS Safety Report 24289990 (Version 5)
Quarter: 2025Q1

REPORT INFORMATION
  Report Type: Report from Study
  Country: US (occurrence: US)
  Receive Date: 20240906
  Receipt Date: 20250327
  Transmission Date: 20250409
  Serious: Yes (Other)
  Sender: TAKEDA
  Company Number: US-TAKEDA-2024TUS064969

PATIENT
  Age: 6 Year
  Sex: Male
  Weight: 19.05 kg

DRUGS (15)
  1. HUMAN IMMUNOGLOBULIN G [Suspect]
     Active Substance: HUMAN IMMUNOGLOBULIN G
     Indication: Hypergammaglobulinaemia
     Dosage: 3 GRAM, QD
     Dates: start: 20240428
  2. HUMAN IMMUNOGLOBULIN G [Suspect]
     Active Substance: HUMAN IMMUNOGLOBULIN G
     Indication: Immune system disorder
     Dosage: 3 GRAM, 1/WEEK
  3. ACETAMINOPHEN [Concomitant]
     Active Substance: ACETAMINOPHEN
  4. EPINEPHRINE [Concomitant]
     Active Substance: EPINEPHRINE
  5. OMEPRAZOLE [Concomitant]
     Active Substance: OMEPRAZOLE
  6. ALBUTEROL SULFATE [Concomitant]
     Active Substance: ALBUTEROL SULFATE
  7. FLONASE ALLERGY RELIEF [Concomitant]
     Active Substance: FLUTICASONE PROPIONATE
  8. LIDOCAINE [Concomitant]
     Active Substance: LIDOCAINE
  9. VITAMIN D [Concomitant]
     Active Substance: VITAMIN D NOS
  10. DIPHENHYDRAMINE [Concomitant]
     Active Substance: DIPHENHYDRAMINE
  11. LORATADINE [Concomitant]
     Active Substance: LORATADINE
  12. Calcium + Vitamin D3 + K2 [Concomitant]
  13. CALCIUM\VITAMIN D [Concomitant]
     Active Substance: CALCIUM\VITAMIN D
  14. EPIPEN JR [Concomitant]
     Active Substance: EPINEPHRINE
  15. PAIN EASE [Concomitant]
     Active Substance: CAMPHOR OIL\MENTHOL\METHYL SALICYLATE

REACTIONS (10)
  - Pneumonia [Unknown]
  - Skin papilloma [Unknown]
  - Product dose omission issue [Unknown]
  - Product distribution issue [Unknown]
  - Illness [Unknown]
  - Obstruction [Unknown]
  - Infusion related reaction [Unknown]
  - Reaction to colouring [Unknown]
  - Swelling [Unknown]
  - Vomiting [Unknown]

NARRATIVE: CASE EVENT DATE: 20240826
